FAERS Safety Report 6312907-9 (Version None)
Quarter: 2009Q3

REPORT INFORMATION
  Report Type: 
  Country: None (occurrence: None)
  Receive Date: 20090818
  Receipt Date: 20090810
  Transmission Date: 20100115
  Serious: Yes (Hospitalization)
  Sender: FDA-Public Use
  Company Number: NO-ASTRAZENECA-2009SE07410

PATIENT
  Age: 40 Year
  Sex: Female

DRUGS (7)
  1. SEROQUEL [Suspect]
     Indication: NERVOUSNESS
     Route: 048
  2. DIFLUCAN [Interacting]
     Indication: FUNGAL INFECTION
     Dates: start: 20081201, end: 20090201
  3. LEVONORGESTREL [Interacting]
     Route: 015
     Dates: start: 20080801
  4. SYMBICORT [Concomitant]
     Dosage: 1 DF = 160/4.5 UG
     Route: 055
  5. LIVOSTIN [Concomitant]
     Dosage: WHEN NEEDED
     Route: 047
  6. AERIUS [Concomitant]
     Route: 048
  7. ALBYL-E [Concomitant]
     Indication: THROMBOSIS PROPHYLAXIS
     Route: 048

REACTIONS (2)
  - DELUSIONAL DISORDER, PERSECUTORY TYPE [None]
  - DRUG INTERACTION [None]
